FAERS Safety Report 12389867 (Version 23)
Quarter: 2018Q2

REPORT INFORMATION
  Report Type: Report from Study
  Country: US (occurrence: US)
  Receive Date: 20160520
  Receipt Date: 20180614
  Transmission Date: 20180711
  Serious: Yes (Hospitalization, Other)
  Sender: FDA-Public Use
  Company Number: US-ACTELION-A-NJ2016-136277

PATIENT
  Age: 72 Year
  Sex: Male
  Weight: 55.78 kg

DRUGS (15)
  1. ORENITRAM [Suspect]
     Active Substance: TREPROSTINIL
     Indication: PULMONARY ARTERIAL HYPERTENSION
     Dosage: 2 MG, TID
     Route: 048
     Dates: start: 20170630
  2. VELETRI [Suspect]
     Active Substance: EPOPROSTENOL
     Indication: PULMONARY ARTERIAL HYPERTENSION
     Dosage: 20 NG/KG, PER MIN
     Route: 042
  3. ORENITRAM [Suspect]
     Active Substance: TREPROSTINIL
     Dosage: 3.5 MG, TID
     Route: 048
  4. OXYGEN. [Concomitant]
     Active Substance: OXYGEN
  5. VELETRI [Suspect]
     Active Substance: EPOPROSTENOL
     Dosage: 6 NG/KG, PER MIN
     Route: 042
  6. DILTIAZEM. [Concomitant]
     Active Substance: DILTIAZEM
  7. VELETRI [Suspect]
     Active Substance: EPOPROSTENOL
     Dosage: 15 NG/KG, PER MIN
     Route: 042
     Dates: end: 20170815
  8. ADEMPAS [Concomitant]
     Active Substance: RIOCIGUAT
     Indication: PRODUCT USED FOR UNKNOWN INDICATION
     Dosage: 2.5 MG, UNK
     Route: 048
  9. ORENITRAM [Suspect]
     Active Substance: TREPROSTINIL
     Dosage: 4.0 MG, TID
     Route: 048
  10. COUMADIN [Concomitant]
     Active Substance: WARFARIN SODIUM
  11. XARELTO [Concomitant]
     Active Substance: RIVAROXABAN
  12. VELETRI [Suspect]
     Active Substance: EPOPROSTENOL
     Dosage: 2 NG/KG, PER MIN
     Route: 042
     Dates: end: 20170815
  13. VELETRI [Suspect]
     Active Substance: EPOPROSTENOL
     Dosage: 5 NG/KG, PER MIN
     Route: 042
     Dates: start: 20160418
  14. ORENITRAM [Suspect]
     Active Substance: TREPROSTINIL
     Dosage: 5 MG, TID
     Route: 048
  15. CARDIZEM [Concomitant]
     Active Substance: DILTIAZEM HYDROCHLORIDE

REACTIONS (25)
  - Cerebrovascular accident [Unknown]
  - Inguinal hernia [Unknown]
  - Hypotension [Unknown]
  - Transient ischaemic attack [Unknown]
  - Diarrhoea [Unknown]
  - Dyspnoea [Unknown]
  - Dizziness [Unknown]
  - Constipation [Unknown]
  - Seborrhoea [Unknown]
  - Chills [Unknown]
  - Weight decreased [Unknown]
  - Abdominal discomfort [Unknown]
  - Pulmonary arterial hypertension [Unknown]
  - Sepsis [Unknown]
  - Weight increased [Unknown]
  - Dyspnoea exertional [Unknown]
  - Erectile dysfunction [Unknown]
  - Malaise [Unknown]
  - Dysgeusia [Unknown]
  - Dyspepsia [Unknown]
  - Decreased appetite [Unknown]
  - Gastrointestinal motility disorder [Unknown]
  - Frequent bowel movements [Unknown]
  - Nausea [Unknown]
  - Disease progression [Unknown]

NARRATIVE: CASE EVENT DATE: 201604
